FAERS Safety Report 6140467-4 (Version None)
Quarter: 2009Q1

REPORT INFORMATION
  Report Type: 
  Country: None (occurrence: None)
  Receive Date: 20090331
  Receipt Date: 20090320
  Transmission Date: 20090719
  Serious: Yes (Other)
  Sender: FDA-Public Use
  Company Number: 2009030051

PATIENT
  Age: 21 Year
  Sex: Female

DRUGS (4)
  1. FELBATOL [Suspect]
     Dosage: 900 MG (300 MG, 3 IN 1 D), ORAL
     Route: 048
  2. TOPAMAX [Concomitant]
  3. CLONAZEPAM [Concomitant]
  4. ZARONTIN [Concomitant]

REACTIONS (6)
  - CATATONIA [None]
  - COGNITIVE DISORDER [None]
  - HYPOAESTHESIA [None]
  - HYPOAESTHESIA ORAL [None]
  - THROAT TIGHTNESS [None]
  - TREMOR [None]
